FAERS Safety Report 16076163 (Version 3)
Quarter: 2019Q2

REPORT INFORMATION
  Report Type: Report from Study
  Country: NL (occurrence: NL)
  Receive Date: 20190315
  Receipt Date: 20190420
  Transmission Date: 20190711
  Serious: Yes (Other)
  Sender: FDA-Public Use
  Company Number: NL-AUROBINDO-AUR-APL-2019-012967

PATIENT

DRUGS (5)
  1. OXALIPLATIN CONCENTRATE FOR SOLUTION FOR INFUSION [Suspect]
     Active Substance: OXALIPLATIN
     Dosage: 260 MG/M2, Q3W
     Route: 042
  2. OXALIPLATIN CONCENTRATE FOR SOLUTION FOR INFUSION [Suspect]
     Active Substance: OXALIPLATIN
     Indication: COLORECTAL ADENOCARCINOMA
     Dosage: 130 MG/M2, 3 WEEK, QCY
     Route: 042
  3. OXALIPLATIN CONCENTRATE FOR SOLUTION FOR INFUSION [Suspect]
     Active Substance: OXALIPLATIN
     Dosage: UNK UNK, UNK
     Route: 042
  4. BEVACIZUMAB. [Suspect]
     Active Substance: BEVACIZUMAB
     Indication: COLORECTAL ADENOCARCINOMA
     Dosage: 7.5 MG/M2, IN CYCLES OF 3 WEEKS
     Route: 042
  5. CAPECITABINE. [Suspect]
     Active Substance: CAPECITABINE
     Indication: COLORECTAL ADENOCARCINOMA
     Dosage: 1000 MG/M2, ORALLY TWICE DAILY
     Route: 048

REACTIONS (3)
  - Asthenia [Unknown]
  - Neurotoxicity [Unknown]
  - Neuropathy peripheral [Unknown]
